FAERS Safety Report 10053996 (Version 1)
Quarter: 2014Q2

REPORT INFORMATION
  Report Type: Spontaneous
  Country: US (occurrence: US)
  Receive Date: 20140402
  Receipt Date: 20140402
  Transmission Date: 20141212
  Serious: Yes (Death)
  Sender: FDA-Public Use
  Company Number: CHPA2014US004627

PATIENT
  Sex: Female

DRUGS (1)
  1. MAALOX, MAXIMUM STRENGTH, MULTI SYMPTOM ANTACID AND ANTIGAS [Suspect]
     Indication: DYSPEPSIA
     Route: 048

REACTIONS (1)
  - Gallbladder cancer [Fatal]
